FAERS Safety Report 13524315 (Version 1)
Quarter: 2017Q2

REPORT INFORMATION
  Report Type: Spontaneous
  Country: IT (occurrence: IT)
  Receive Date: 20170508
  Receipt Date: 20170508
  Transmission Date: 20170830
  Serious: Yes (Death)
  Sender: FDA-Public Use
  Company Number: IT-IMPAX LABORATORIES, INC-2017-IPXL-01225

PATIENT
  Age: 59 Year
  Sex: Male

DRUGS (2)
  1. EPIRUBICIN HYDROCHLORIDE. [Suspect]
     Active Substance: EPIRUBICIN HYDROCHLORIDE
     Indication: CHEMOTHERAPY
     Dosage: 60 MG/M2 (DAY 1), REPEATED EVERY 3 WEEKS
     Route: 065
  2. IFOSFAMIDA [Suspect]
     Active Substance: IFOSFAMIDE
     Indication: CHEMOTHERAPY
     Dosage: 3000 MG/M2 (DAY 1), REPEATED EVERY 3 WEEKS
     Route: 065

REACTIONS (1)
  - Neoplasm progression [Fatal]
